FAERS Safety Report 10839464 (Version 1)
Quarter: 2015Q1

REPORT INFORMATION
  Report Type: Report from Study
  Country: US (occurrence: US)
  Receive Date: 20150220
  Receipt Date: 20150220
  Transmission Date: 20150721
  Serious: No
  Sender: FDA-Public Use
  Company Number: US-ABBVIE-14P-163-1232088-00

PATIENT
  Sex: Female
  Weight: 63.56 kg

DRUGS (3)
  1. LEVOXYL [Concomitant]
     Active Substance: LEVOTHYROXINE SODIUM
     Indication: HYPOTHYROIDISM
  2. METFORMIN [Concomitant]
     Active Substance: METFORMIN HYDROCHLORIDE
     Indication: INSULIN RESISTANCE
  3. HUMIRA [Suspect]
     Active Substance: ADALIMUMAB
     Indication: RHEUMATOID ARTHRITIS
     Route: 058
     Dates: start: 2012, end: 201308

REACTIONS (2)
  - Skin wound [Recovered/Resolved]
  - Nasopharyngitis [Recovered/Resolved]

NARRATIVE: CASE EVENT DATE: 2012
